FAERS Safety Report 17196622 (Version 1)
Quarter: 2019Q4

REPORT INFORMATION
  Report Type: Spontaneous
  Country: US (occurrence: US)
  Receive Date: 20191224
  Receipt Date: 20191224
  Transmission Date: 20200122
  Serious: Yes (Hospitalization)
  Sender: FDA-Public Use
  Company Number: US-PFIZER INC-2019359550

PATIENT
  Age: 61 Year
  Sex: Female
  Weight: 106.5 kg

DRUGS (2)
  1. TALZENNA [Suspect]
     Active Substance: TALAZOPARIB TOSYLATE
     Indication: BREAST CANCER STAGE IV
     Dosage: 1 MG, DAILY
     Route: 048
  2. TALZENNA [Suspect]
     Active Substance: TALAZOPARIB TOSYLATE
     Dosage: 0.25 MG, 3 AT NIGHT (TOTAL DAILY DOSE 0.75 MG)
     Route: 048

REACTIONS (5)
  - Pneumonia [Recovered/Resolved with Sequelae]
  - Muscle spasms [Unknown]
  - Fatigue [Unknown]
  - Somnolence [Unknown]
  - Product dose omission [Not Recovered/Not Resolved]

NARRATIVE: CASE EVENT DATE: 20191117
